FAERS Safety Report 7537735-8 (Version None)
Quarter: 2011Q2

REPORT INFORMATION
  Report Type: 
  Country: None (occurrence: None)
  Receive Date: 20110609
  Receipt Date: 20071109
  Transmission Date: 20111010
  Serious: Yes (Other)
  Sender: FDA-Public Use
  Company Number: PHFR2007IE03070

PATIENT
  Sex: Male

DRUGS (6)
  1. CLOZAPINE [Suspect]
     Indication: SCHIZOPHRENIA
     Dosage: 400 MG MORN/450 MG NOCTE
     Route: 048
     Dates: start: 19971229
  2. COD-LIVER OIL [Concomitant]
     Route: 065
  3. LECITHIN [Concomitant]
     Route: 065
  4. SOLIAN [Concomitant]
     Indication: SCHIZOPHRENIA
     Dosage: 200 MG PER DAY
     Route: 048
  5. ATIVAN [Concomitant]
  6. LORAZEPAM [Concomitant]
     Dosage: 3.5 MG MORN/3.5 MG NOCTE
     Route: 048

REACTIONS (5)
  - AFFECTIVE DISORDER [None]
  - PSYCHOTIC BEHAVIOUR [None]
  - FLIGHT OF IDEAS [None]
  - AGGRESSION [None]
  - IRRITABILITY [None]
